FAERS Safety Report 16911100 (Version 1)
Quarter: 2019Q4

REPORT INFORMATION
  Report Type: Spontaneous
  Country: US (occurrence: US)
  Receive Date: 20190820
  Receipt Date: 20190820
  Transmission Date: 20200122
  Serious: No
  Sender: FDA-Public Use
  Company Number: None

PATIENT
  Age: 70 Year
  Sex: Female
  Weight: 98.88 kg

DRUGS (11)
  1. VITAMIN D3 [Concomitant]
     Active Substance: CHOLECALCIFEROL
  2. METFORMIN [Concomitant]
     Active Substance: METFORMIN HYDROCHLORIDE
  3. VITAMIN D3 [Concomitant]
     Active Substance: CHOLECALCIFEROL
  4. ASPIRIN. [Concomitant]
     Active Substance: ASPIRIN
  5. ASPIRIN. [Concomitant]
     Active Substance: ASPIRIN
  6. LEVOTHYROXINE. [Concomitant]
     Active Substance: LEVOTHYROXINE
  7. PRALUENT [Suspect]
     Active Substance: ALIROCUMAB
     Indication: TYPE IIA HYPERLIPIDAEMIA
     Dosage: ?          QUANTITY:2 DISPOSABLE PENS;?
     Dates: start: 20171110, end: 20190629
  8. CARVEDILOL. [Concomitant]
     Active Substance: CARVEDILOL
  9. EZETIMIBE. [Concomitant]
     Active Substance: EZETIMIBE
  10. AMLODIPINE [Concomitant]
     Active Substance: AMLODIPINE BESYLATE
  11. LOSARTAN AND HYDROCHLOROTHIAZIDE [Concomitant]
     Active Substance: HYDROCHLOROTHIAZIDE\LOSARTAN POTASSIUM

REACTIONS (12)
  - Pain in extremity [None]
  - Musculoskeletal pain [None]
  - Influenza like illness [None]
  - Arthralgia [None]
  - Back pain [None]
  - Body temperature increased [None]
  - Dysphonia [None]
  - Asthenia [None]
  - Loss of consciousness [None]
  - Influenza [None]
  - Chills [None]
  - Decreased appetite [None]

NARRATIVE: CASE EVENT DATE: 20180129
